FAERS Safety Report 25263256 (Version 1)
Quarter: 2025Q2

REPORT INFORMATION
  Report Type: Other
  Country: AE (occurrence: AE)
  Receive Date: 20250502
  Receipt Date: 20250502
  Transmission Date: 20250717
  Serious: Yes (Death, Life-Threatening, Hospitalization, Other)
  Sender: BRECKENRIDGE PHARMACEUTICAL, INC.
  Company Number: AE-Breckenridge Pharmaceutical, Inc.-2176051

PATIENT
  Age: 13 Year
  Sex: Male

DRUGS (6)
  1. PENICILLAMINE [Suspect]
     Active Substance: PENICILLAMINE
     Indication: Hepato-lenticular degeneration
  2. LACTULOSE [Concomitant]
     Active Substance: LACTULOSE
  3. ZINC ACETATE [Concomitant]
     Active Substance: ZINC ACETATE
  4. URSODIOL [Concomitant]
     Active Substance: URSODIOL
  5. RIFAXIMIN [Concomitant]
     Active Substance: RIFAXIMIN
  6. CARVEDILOL [Concomitant]
     Active Substance: CARVEDILOL

REACTIONS (7)
  - Disseminated intravascular coagulation [Fatal]
  - Pulmonary oedema [Unknown]
  - Hepatic failure [Fatal]
  - Acute kidney injury [Not Recovered/Not Resolved]
  - Anuria [Unknown]
  - International normalised ratio increased [Unknown]
  - Death [Fatal]
